FAERS Safety Report 6530713-7 (Version None)
Quarter: 2010Q1

REPORT INFORMATION
  Report Type: 
  Country: None (occurrence: None)
  Receive Date: 20100108
  Receipt Date: 20090227
  Transmission Date: 20100710
  Serious: No
  Sender: FDA-Public Use
  Company Number: A0759522A

PATIENT
  Age: 52 Year
  Sex: Female
  Weight: 92.7 kg

DRUGS (1)
  1. LOVAZA [Suspect]
     Indication: DRUG USE FOR UNKNOWN INDICATION
     Route: 065

REACTIONS (4)
  - DYSGEUSIA [None]
  - PAROSMIA [None]
  - PRODUCT QUALITY ISSUE [None]
  - RETCHING [None]
